FAERS Safety Report 6192369-5 (Version None)
Quarter: 2009Q2

REPORT INFORMATION
  Report Type: 
  Country: None (occurrence: None)
  Receive Date: 20090518
  Receipt Date: 20080319
  Transmission Date: 20091009
  Serious: Yes (Hospitalization, Other)
  Sender: FDA-Public Use
  Company Number: US-ASTRAZENECA-2008UW01147

PATIENT
  Age: 18066 Day
  Sex: Male
  Weight: 120.2 kg

DRUGS (45)
  1. SEROQUEL [Suspect]
     Indication: DEPRESSION
     Route: 048
     Dates: start: 20020301
  2. SEROQUEL [Suspect]
     Indication: INSOMNIA
     Route: 048
     Dates: start: 20020301
  3. ENDOCET [Concomitant]
     Dosage: 5-325  MG DISPENSED
     Route: 065
  4. MELOXICAM [Concomitant]
     Route: 065
  5. FLUOXETINE HCL [Concomitant]
     Dosage: 20-40 MG
     Route: 065
  6. AMITRIPTLINE HYDROCHLORIDE TAB [Concomitant]
     Route: 065
  7. PRANDIN [Concomitant]
     Route: 065
  8. NEXIUM [Concomitant]
     Dosage: 20-40 MG
     Route: 065
  9. LIPITOR [Concomitant]
     Route: 065
  10. METFORMIN HCL [Concomitant]
     Route: 065
  11. MONOPRIL [Concomitant]
     Dosage: 10-40 MG
     Route: 065
  12. ALLEGRA [Concomitant]
     Dosage: 120-180 MG
     Route: 065
  13. METOCLOPRAMIDE [Concomitant]
     Route: 065
  14. ACULAR LS [Concomitant]
     Route: 065
  15. BEXTRA [Concomitant]
     Route: 065
  16. AVELOX [Concomitant]
     Route: 065
  17. ZITHROMAX [Concomitant]
     Route: 065
  18. LORAZEPAM [Concomitant]
     Dosage: 0.5 - 1.0 MG
     Route: 065
  19. CYCLOBENZAPRINE [Concomitant]
     Route: 065
  20. ZYMAR [Concomitant]
     Route: 065
  21. QUININE SULFATE [Concomitant]
     Route: 065
  22. ALOCRIL [Concomitant]
     Route: 065
  23. FLUCONAZOLE [Concomitant]
     Route: 065
  24. GENTAMICIN [Concomitant]
     Route: 047
  25. BISACODYL [Concomitant]
     Route: 065
  26. DURAGESIC-100 [Concomitant]
     Dosage: 25-50 MCG/HR
     Route: 065
  27. ALBUTEROL [Concomitant]
     Route: 065
  28. FUROSEMIDE [Concomitant]
     Route: 065
  29. PREDNISONE [Concomitant]
     Route: 065
  30. VISICOL [Concomitant]
     Route: 065
  31. DOXYCYCL HYC [Concomitant]
     Route: 065
  32. POT CHLORIDE [Concomitant]
     Route: 065
  33. HISTINEX HC [Concomitant]
     Route: 065
  34. NAPROXEN [Concomitant]
     Route: 065
  35. COREG [Concomitant]
     Dosage: 3.125-50 MG
     Route: 065
  36. PROCHLORPER [Concomitant]
     Route: 065
  37. LAC-HYDRIN 12 % [Concomitant]
     Route: 061
  38. PREVACID [Concomitant]
     Route: 065
  39. PREVPAC [Concomitant]
     Route: 065
  40. HYOSCYAMIN ER [Concomitant]
     Route: 065
  41. ASACOL [Concomitant]
     Route: 065
  42. PENICILLIN VK [Concomitant]
     Route: 065
  43. MECLIZINE [Concomitant]
     Route: 065
  44. DICLOFENAC SODIUM [Concomitant]
     Route: 065
  45. CELEBREX [Concomitant]
     Route: 065

REACTIONS (25)
  - ABDOMINAL PAIN [None]
  - ARTHRITIS [None]
  - BRONCHITIS [None]
  - CATARACT [None]
  - CONTUSION [None]
  - DIABETES MELLITUS [None]
  - DIABETIC GASTROPARESIS [None]
  - DIVERTICULUM [None]
  - DIZZINESS [None]
  - GOUT [None]
  - HAEMORRHOIDS [None]
  - HEAD INJURY [None]
  - HEPATITIS [None]
  - HYPERCHOLESTEROLAEMIA [None]
  - HYPOGLYCAEMIA [None]
  - INTERVERTEBRAL DISC DISORDER [None]
  - LIMB DISCOMFORT [None]
  - NAUSEA [None]
  - OEDEMA PERIPHERAL [None]
  - PAIN IN EXTREMITY [None]
  - PILONIDAL CYST [None]
  - TYPE 2 DIABETES MELLITUS [None]
  - VERTIGO [None]
  - VIRAL INFECTION [None]
  - VOMITING [None]
